FAERS Safety Report 20364498 (Version 2)
Quarter: 2022Q2

REPORT INFORMATION
  Report Type: Report from Study
  Country: US (occurrence: US)
  Receive Date: 20220122
  Receipt Date: 20220418
  Transmission Date: 20220721
  Serious: No
  Sender: FDA-Public Use
  Company Number: US-NOVARTISTESTPH-NVSC2022US013060

PATIENT
  Sex: Female

DRUGS (1)
  1. COSENTYX [Suspect]
     Active Substance: SECUKINUMAB
     Indication: Psoriasis
     Dosage: 300 MG, QW(LOAD WEEK 0, 1, 2, 3, 4 AND EVERY 4)
     Route: 058

REACTIONS (2)
  - Skin lesion [Not Recovered/Not Resolved]
  - Stress [Unknown]
